FAERS Safety Report 7906586-4 (Version None)
Quarter: 2011Q4

REPORT INFORMATION
  Report Type: 
  Country: None (occurrence: None)
  Receive Date: 20111110
  Receipt Date: 20111101
  Transmission Date: 20120403
  Serious: Yes (Other)
  Sender: FDA-Public Use
  Company Number: JP-SANOFI-AVENTIS-2011SA073140

PATIENT

DRUGS (1)
  1. ALLEGRA [Suspect]
     Route: 065
     Dates: start: 20111012

REACTIONS (1)
  - ANAPHYLACTIC SHOCK [None]
